FAERS Safety Report 12248855 (Version 3)
Quarter: 2016Q2

REPORT INFORMATION
  Report Type: Spontaneous
  Country: SE (occurrence: SE)
  Receive Date: 20160408
  Receipt Date: 20160418
  Transmission Date: 20160815
  Serious: Yes (Other)
  Sender: FDA-Public Use
  Company Number: SE-PFIZER INC-2016193158

PATIENT
  Age: 71 Year
  Sex: Female

DRUGS (17)
  1. CYMBALTA [Concomitant]
     Active Substance: DULOXETINE HYDROCHLORIDE
  2. SOBRIL [Concomitant]
     Active Substance: OXAZEPAM
  3. CITALOPRAM CNSPHARMA /00582602/ [Concomitant]
  4. FENTANYL LAVIPHARM [Concomitant]
  5. ELIQUIS [Interacting]
     Active Substance: APIXABAN
     Indication: ATRIAL FIBRILLATION
     Dosage: 5 MG, 2X/DAY
     Route: 048
     Dates: start: 20150624
  6. ELIQUIS [Interacting]
     Active Substance: APIXABAN
     Indication: CEREBROVASCULAR ACCIDENT PROPHYLAXIS
  7. LEVAXIN [Concomitant]
     Active Substance: LEVOTHYROXINE SODIUM
  8. ALLOPURINOL NYCOMED [Concomitant]
  9. OXIKODON DEPOT ACTAVIS [Concomitant]
  10. PANODIL [Concomitant]
     Active Substance: ACETAMINOPHEN
  11. DIFLUCAN [Suspect]
     Active Substance: FLUCONAZOLE
     Indication: FUNGAL INFECTION
     Dosage: 150 MG, 2X/DAY
     Route: 048
     Dates: start: 20160301, end: 20160327
  12. ELIQUIS [Interacting]
     Active Substance: APIXABAN
     Indication: ANTICOAGULANT THERAPY
  13. NOVOMIX 30 FLEXPEN [Concomitant]
     Active Substance: INSULIN ASPART
  14. METOCLOPRAMIDE ALTERNOVA [Concomitant]
     Dosage: UNK, AS NEEDED
  15. MOVICOL [Concomitant]
     Active Substance: POLYETHYLENE GLYCOL 3350\POTASSIUM CHLORIDE\SODIUM BICARBONATE\SODIUM CHLORIDE
     Dosage: UNK, AS NEEDED
  16. TOREM /01036501/ [Concomitant]
     Active Substance: TORSEMIDE
  17. OMEPRAZOL SANDOZ [Concomitant]

REACTIONS (8)
  - Petechiae [Recovered/Resolved]
  - Postoperative wound infection [Unknown]
  - Haematoma [Recovered/Resolved]
  - Drug interaction [Recovered/Resolved]
  - Urinary tract infection [Unknown]
  - Hip fracture [Unknown]
  - Surgery [Unknown]
  - Fungal infection [Unknown]

NARRATIVE: CASE EVENT DATE: 201512
